FAERS Safety Report 15795229 (Version 4)
Quarter: 2021Q3

REPORT INFORMATION
  Report Type: Spontaneous
  Country: US (occurrence: US)
  Receive Date: 20190107
  Receipt Date: 20210727
  Transmission Date: 20211014
  Serious: Yes (Other)
  Sender: FDA-Public Use
  Company Number: US-PFIZER INC-2019008259

PATIENT
  Age: 73 Year
  Sex: Female

DRUGS (1)
  1. XELJANZ XR [Suspect]
     Active Substance: TOFACITINIB CITRATE
     Indication: RHEUMATOID ARTHRITIS
     Dosage: 11 MG, 1X/DAY
     Route: 048

REACTIONS (12)
  - Diabetes mellitus [Unknown]
  - Weight decreased [Unknown]
  - Fatigue [Unknown]
  - Peripheral swelling [Recovered/Resolved]
  - COVID-19 [Unknown]
  - Dementia [Unknown]
  - Blood cholesterol increased [Unknown]
  - Dementia Alzheimer^s type [Unknown]
  - Hypertension [Unknown]
  - Osteoarthritis [Unknown]
  - Dyspnoea [Unknown]
  - Headache [Unknown]
